FAERS Safety Report 4414651-1 (Version None)
Quarter: 2004Q3

REPORT INFORMATION
  Report Type: 
  Country: None (occurrence: None)
  Receive Date: 20040729
  Receipt Date: 20031104
  Transmission Date: 20050211
  Serious: Yes (Hospitalization)
  Sender: FDA-Public Use
  Company Number: 20031586

PATIENT
  Age: 9 Year
  Sex: Male

DRUGS (1)
  1. LIORESAL [Suspect]
     Indication: MUSCLE SPASTICITY
     Dosage: DAILY, INTRATHECAL
     Route: 039

REACTIONS (5)
  - BRUXISM [None]
  - CATHETER RELATED COMPLICATION [None]
  - DEVICE FAILURE [None]
  - GRANULOMA [None]
  - MUSCLE RIGIDITY [None]
